FAERS Safety Report 25160788 (Version 1)
Quarter: 2025Q2

REPORT INFORMATION
  Report Type: Spontaneous
  Country: TW (occurrence: TW)
  Receive Date: 20250404
  Receipt Date: 20250404
  Transmission Date: 20250717
  Serious: Yes (Life-Threatening)
  Sender: UCB
  Company Number: TW-UCBSA-2025019361

PATIENT
  Age: 75 Year
  Sex: Male
  Weight: 77.4 kg

DRUGS (3)
  1. VIMPAT [Suspect]
     Active Substance: LACOSAMIDE
     Indication: Seizure prophylaxis
     Dosage: 200 MILLIGRAM, 2X/DAY (BID)
     Dates: start: 20250321, end: 20250322
  2. VIMPAT [Suspect]
     Active Substance: LACOSAMIDE
     Indication: Off label use
  3. UNASYN [Suspect]
     Active Substance: AMPICILLIN SODIUM\SULBACTAM SODIUM
     Indication: Prophylaxis
     Dosage: 1000 MILLIGRAM, 4X/DAY (QID)
     Route: 042
     Dates: start: 20250321, end: 20250323

REACTIONS (4)
  - Anaphylactic shock [Recovered/Resolved]
  - Rash [Recovered/Resolved]
  - Hypotension [Recovered/Resolved]
  - Off label use [Unknown]

NARRATIVE: CASE EVENT DATE: 20250321
